FAERS Safety Report 10649939 (Version 5)
Quarter: 2015Q3

REPORT INFORMATION
  Report Type: Spontaneous
  Country: US (occurrence: US)
  Receive Date: 20141212
  Receipt Date: 20150924
  Transmission Date: 20151125
  Serious: Yes (Hospitalization, Other)
  Sender: FDA-Public Use
  Company Number: US-009507513-1412USA006031

PATIENT
  Sex: Female
  Weight: 64.4 kg

DRUGS (5)
  1. RECLAST [Suspect]
     Active Substance: ZOLEDRONIC ACID
     Indication: OSTEOPOROSIS
     Dosage: ONE INFUSION IN 2008, 2009 AND 2010
     Route: 041
     Dates: start: 2008, end: 2010
  2. ACTONEL [Suspect]
     Active Substance: RISEDRONATE SODIUM
     Indication: PRODUCT USED FOR UNKNOWN INDICATION
     Route: 048
  3. FOSAMAX [Suspect]
     Active Substance: ALENDRONATE SODIUM
     Indication: OSTEOPOROSIS
     Dosage: UNK
     Route: 048
     Dates: start: 2001, end: 2005
  4. FOSAMAX [Suspect]
     Active Substance: ALENDRONATE SODIUM
     Indication: OSTEOPENIA
     Dosage: UNK
     Route: 048
     Dates: start: 20130206
  5. FOSAMAX [Suspect]
     Active Substance: ALENDRONATE SODIUM
     Dosage: UNK
     Route: 048

REACTIONS (25)
  - Pruritus allergic [Unknown]
  - Low turnover osteopathy [Unknown]
  - Rib fracture [Unknown]
  - Palpitations [Unknown]
  - Bone lesion [Unknown]
  - Quality of life decreased [Unknown]
  - Hypothyroidism [Not Recovered/Not Resolved]
  - Vitamin D deficiency [Not Recovered/Not Resolved]
  - Drug hypersensitivity [Unknown]
  - Malaise [Unknown]
  - Dizziness [Unknown]
  - Premature menopause [Not Recovered/Not Resolved]
  - Pain in jaw [Unknown]
  - Pain in extremity [Not Recovered/Not Resolved]
  - Urticaria [Unknown]
  - Atypical femur fracture [Recovered/Resolved]
  - Periodontal disease [Unknown]
  - Adverse drug reaction [Unknown]
  - Eye injury [Unknown]
  - Glaucoma [Unknown]
  - Hyperparathyroidism [Unknown]
  - Tonsillar disorder [Unknown]
  - Calcium deficiency [Unknown]
  - Bone disorder [Unknown]
  - Food allergy [Unknown]

NARRATIVE: CASE EVENT DATE: 2001
